FAERS Safety Report 5280914-3 (Version None)
Quarter: 2007Q1

REPORT INFORMATION
  Report Type: 
  Country: None (occurrence: None)
  Receive Date: 20070329
  Receipt Date: 20070319
  Transmission Date: 20070707
  Serious: Yes (Hospitalization, Other)
  Sender: FDA-Public Use
  Company Number: US-ELI_LILLY_AND_COMPANY-US200703003789

PATIENT
  Age: 75 Year
  Sex: Male

DRUGS (4)
  1. FORTEO [Suspect]
     Indication: OSTEOPOROSIS
     Dates: end: 20061201
  2. FORTEO [Suspect]
     Dates: start: 20061201, end: 20070101
  3. FORTEO [Suspect]
     Dates: start: 20070101
  4. PREDNISONE [Concomitant]
     Indication: RHEUMATOID ARTHRITIS
     Dosage: 5 MG, 2/D

REACTIONS (8)
  - BRONCHITIS [None]
  - FALL [None]
  - FOOT FRACTURE [None]
  - INFLUENZA [None]
  - LOSS OF CONSCIOUSNESS [None]
  - MOBILITY DECREASED [None]
  - STOMACH DISCOMFORT [None]
  - VOMITING [None]
